FAERS Safety Report 11651415 (Version 1)
Quarter: 2015Q4

REPORT INFORMATION
  Report Type: Report from Study
  Country: US (occurrence: US)
  Receive Date: 20151022
  Receipt Date: 20151022
  Transmission Date: 20160304
  Serious: Yes (Other)
  Sender: FDA-Public Use
  Company Number: US-AMGEN-USASL2015108968

PATIENT
  Age: 41 Year
  Sex: Male

DRUGS (1)
  1. SENSIPAR [Suspect]
     Active Substance: CINACALCET HYDROCHLORIDE
     Indication: HYPERPARATHYROIDISM
     Dosage: QD
     Route: 048

REACTIONS (2)
  - Swelling face [Not Recovered/Not Resolved]
  - Renal transplant [Unknown]

NARRATIVE: CASE EVENT DATE: 20151015
